FAERS Safety Report 17082940 (Version 1)
Quarter: 2019Q4

REPORT INFORMATION
  Report Type: Spontaneous
  Country: US (occurrence: US)
  Receive Date: 20191127
  Receipt Date: 20191127
  Transmission Date: 20200122
  Serious: Yes (Hospitalization, Other)
  Sender: FDA-Public Use
  Company Number: US-PFIZER INC-2019509968

PATIENT
  Age: 56 Year
  Sex: Male
  Weight: 88 kg

DRUGS (1)
  1. LYRICA [Suspect]
     Active Substance: PREGABALIN
     Dosage: UNK

REACTIONS (7)
  - Pneumothorax [Unknown]
  - Accident [Unknown]
  - Head injury [Unknown]
  - Spinal cord injury [Unknown]
  - Cervical vertebral fracture [Unknown]
  - Memory impairment [Unknown]
  - Rib fracture [Unknown]

NARRATIVE: CASE EVENT DATE: 20170424
